FAERS Safety Report 8993368 (Version 2)
Quarter: 2013Q1

REPORT INFORMATION
  Report Type: Spontaneous
  Country: JP (occurrence: JP)
  Receive Date: 20130102
  Receipt Date: 20130116
  Transmission Date: 20140127
  Serious: Yes (Hospitalization)
  Sender: FDA-Public Use
  Company Number: JP-PFIZER INC-2013000258

PATIENT
  Age: 54 Year
  Sex: Male

DRUGS (5)
  1. CELECOX [Suspect]
     Indication: CERVICOBRACHIAL SYNDROME
     Dosage: 200 MG, UNK/D
     Route: 048
     Dates: start: 20120207, end: 20120210
  2. SAWACILLIN [Suspect]
     Dosage: UNK
     Route: 048
  3. CONIEL [Concomitant]
     Dosage: 4 MG DAILY
     Route: 048
     Dates: start: 2006
  4. TOWAMIN [Concomitant]
     Dosage: 25 MG DAILY
     Route: 048
     Dates: start: 2006
  5. TAKEPRON [Concomitant]
     Dosage: 15 MG DAILY
     Route: 048
     Dates: start: 200809

REACTIONS (3)
  - Drug-induced liver injury [Unknown]
  - Nausea [Unknown]
  - Diarrhoea [Unknown]
